FAERS Safety Report 16036659 (Version 2)
Quarter: 2020Q1

REPORT INFORMATION
  Report Type: Spontaneous
  Country: US (occurrence: US)
  Receive Date: 20190305
  Receipt Date: 20200303
  Transmission Date: 20200409
  Serious: No
  Sender: FDA-Public Use
  Company Number: US-IMPAX LABORATORIES, LLC-2018-IPXL-03142

PATIENT
  Sex: Female

DRUGS (5)
  1. RYTARY [Suspect]
     Active Substance: CARBIDOPA\LEVODOPA
     Indication: PARKINSON^S DISEASE
     Dosage: 48.75/195 MG,  3 CAPSULES, FOUR TIMES DAILY AT 5AM, 10AM, 3PM AND 8PM
     Route: 065
     Dates: start: 20180816
  2. BUSPIRONE [BUSPIRONE HYDROCHLORIDE] [Concomitant]
     Indication: PRODUCT USED FOR UNKNOWN INDICATION
     Dosage: 1 TABLETS
     Route: 065
  3. RYTARY [Suspect]
     Active Substance: CARBIDOPA\LEVODOPA
     Dosage: 23.75/95MG, 1 CAPSULE QID AND 48.75/195MG 3 CAPSULES QID AT 5AM, 10AM, 3PM, 8PM
     Route: 048
  4. CARBIDOPA/LEVODOPA [Concomitant]
     Active Substance: CARBIDOPA\LEVODOPA
     Indication: PARKINSON^S DISEASE
     Dosage: 1/2 TABLET AT 5 AM ONCE A DAY
     Route: 065
  5. CITALOPRAM [Concomitant]
     Active Substance: CITALOPRAM HYDROBROMIDE
     Indication: PRODUCT USED FOR UNKNOWN INDICATION
     Dosage: 1 AND 1/2

REACTIONS (5)
  - Abdominal discomfort [Unknown]
  - Weight decreased [Unknown]
  - Hypophagia [Unknown]
  - Dysphagia [Not Recovered/Not Resolved]
  - Prescribed overdose [Unknown]
